FAERS Safety Report 17287552 (Version 5)
Quarter: 2020Q1

REPORT INFORMATION
  Report Type: Spontaneous
  Country: US (occurrence: US)
  Receive Date: 20200120
  Receipt Date: 20200213
  Transmission Date: 20200409
  Serious: Yes (Other)
  Sender: FDA-Public Use
  Company Number: US-VIFOR (INTERNATIONAL) INC.-VIT-2020-00654

PATIENT
  Age: 37 Year
  Sex: Female
  Weight: 84.5 kg

DRUGS (11)
  1. MIRCERA [Suspect]
     Active Substance: METHOXY POLYETHYLENE GLYCOL-EPOETIN BETA
     Indication: NEPHROGENIC ANAEMIA
     Dosage: 1 DOSE OF MIRCERA
     Route: 042
     Dates: start: 20191124, end: 20191124
  2. MIRCERA [Suspect]
     Active Substance: METHOXY POLYETHYLENE GLYCOL-EPOETIN BETA
     Dosage: 1 DOSE OF MIRCERA
     Route: 042
     Dates: start: 20200106, end: 20200106
  3. CLONIDINE. [Concomitant]
     Active Substance: CLONIDINE
  4. MIRCERA [Suspect]
     Active Substance: METHOXY POLYETHYLENE GLYCOL-EPOETIN BETA
     Dosage: 1 DOSE OF MIRCERA
     Route: 042
     Dates: start: 20191209, end: 20191209
  5. NIFEDIPINE. [Concomitant]
     Active Substance: NIFEDIPINE
     Route: 042
  6. IMITREX [Concomitant]
     Active Substance: SUMATRIPTAN SUCCINATE
  7. ECULIZUMAB [Concomitant]
     Active Substance: ECULIZUMAB
     Route: 042
  8. MIRCERA [Suspect]
     Active Substance: METHOXY POLYETHYLENE GLYCOL-EPOETIN BETA
     Dosage: 1 DOSE OF MIRCERA
     Route: 042
     Dates: start: 20191222, end: 20191222
  9. VENOFER [Suspect]
     Active Substance: IRON SUCROSE
     Indication: ANAEMIA
     Route: 042
  10. HEPARIN [Concomitant]
     Active Substance: HEPARIN SODIUM
  11. MYCOPHENOLATE MOFETIL. [Concomitant]
     Active Substance: MYCOPHENOLATE MOFETIL

REACTIONS (3)
  - Fatigue [Unknown]
  - Aplasia pure red cell [Unknown]
  - Anaemia [Not Recovered/Not Resolved]

NARRATIVE: CASE EVENT DATE: 2019
